FAERS Safety Report 21558862 (Version 1)
Quarter: 2022Q4

REPORT INFORMATION
  Report Type: Spontaneous
  Country: US (occurrence: None)
  Receive Date: 20221103
  Receipt Date: 20221103
  Transmission Date: 20230112
  Serious: No
  Sender: FDA-Public Use
  Company Number: None

PATIENT
  Age: 72 Year
  Sex: Female
  Weight: 81.65 kg

DRUGS (21)
  1. XPOVIO [Suspect]
     Active Substance: SELINEXOR
     Indication: Plasma cell myeloma
     Dosage: FREQUENCY : WEEKLY;?
     Route: 048
     Dates: start: 20220718, end: 202211
  2. ACYCLOVIR [Concomitant]
  3. ASPIRIN [Concomitant]
     Active Substance: ASPIRIN
  4. ALBUTEROL [Concomitant]
  5. APREPITANT [Concomitant]
  6. ARTIFICAL TEARS [Concomitant]
  7. ATORVASTATIN [Concomitant]
  8. BACTRIM DS [Concomitant]
  9. CALCIUM CARBONATE [Concomitant]
  10. DEXAMETHASONE [Concomitant]
  11. FISH OIL [Concomitant]
  12. LANTUS SOLOSTAR [Concomitant]
     Active Substance: INSULIN GLARGINE
  13. LORAZEPAM [Concomitant]
  14. MAGOX [Concomitant]
  15. METFORMIN [Concomitant]
  16. NORCO [Concomitant]
     Active Substance: ACETAMINOPHEN\HYDROCODONE BITARTRATE
  17. OLANZAPINE [Concomitant]
  18. ONDANSETRON [Concomitant]
  19. PROTONIX [Concomitant]
  20. TYLENOL VITAMIN D [Concomitant]
  21. ZINC SULFATE [Concomitant]

REACTIONS (2)
  - Nausea [None]
  - Weight decreased [None]
